FAERS Safety Report 16196471 (Version 1)
Quarter: 2019Q2

REPORT INFORMATION
  Report Type: Spontaneous
  Country: US (occurrence: US)
  Receive Date: 20190412
  Receipt Date: 20190412
  Transmission Date: 20190711
  Serious: Yes (Hospitalization)
  Sender: FDA-Public Use
  Company Number: None

PATIENT
  Age: 86 Year
  Sex: Male
  Weight: 89.3 kg

DRUGS (3)
  1. CYCLOPHOSPHAMIDE. [Concomitant]
     Active Substance: CYCLOPHOSPHAMIDE
     Dates: start: 20190103, end: 20190105
  2. AXICABTAGENE CILOLEUCEL [Suspect]
     Active Substance: AXICABTAGENE CILOLEUCEL
     Indication: DIFFUSE LARGE B-CELL LYMPHOMA
     Dosage: ?          OTHER FREQUENCY:ONCE;OTHER ROUTE:INFUSED VIA CENTRAL LINE?
     Dates: start: 20190108, end: 20190108
  3. FLUDARABINE PHOSPHATE. [Concomitant]
     Active Substance: FLUDARABINE PHOSPHATE
     Dates: start: 20190103, end: 20190105

REACTIONS (5)
  - Febrile neutropenia [None]
  - Cytokine release syndrome [None]
  - Neurotoxicity [None]
  - Aphasia [None]
  - Bradyphrenia [None]

NARRATIVE: CASE EVENT DATE: 20190207
